FAERS Safety Report 9421143 (Version 1)
Quarter: 2013Q3

REPORT INFORMATION
  Report Type: Spontaneous
  Country: FR (occurrence: FR)
  Receive Date: 20130725
  Receipt Date: 20130725
  Transmission Date: 20140515
  Serious: Yes (Other)
  Sender: FDA-Public Use
  Company Number: PHHY2013FR077105

PATIENT
  Age: 57 Year
  Sex: Female

DRUGS (1)
  1. OMEPRAZOLE [Suspect]

REACTIONS (9)
  - Subacute cutaneous lupus erythematosus [Unknown]
  - Dermatitis psoriasiform [Unknown]
  - Erythema [Unknown]
  - Skin exfoliation [Unknown]
  - Systemic lupus erythematosus [Unknown]
  - Pyrexia [Unknown]
  - General physical health deterioration [Unknown]
  - Pericarditis [Unknown]
  - Lupus vasculitis [Unknown]
